FAERS Safety Report 6385516-3 (Version None)
Quarter: 2009Q4

REPORT INFORMATION
  Report Type: 
  Country: None (occurrence: None)
  Receive Date: 20091002
  Receipt Date: 20080924
  Transmission Date: 20100525
  Serious: No
  Sender: FDA-Public Use
  Company Number: US-ASTRAZENECA-2008UW20174

PATIENT
  Age: 66 Year
  Sex: Female
  Weight: 80.7 kg

DRUGS (12)
  1. ARIMIDEX [Suspect]
     Indication: BREAST CANCER FEMALE
     Route: 048
     Dates: start: 20080501
  2. NEXIUM [Suspect]
     Route: 048
  3. NEXIUM [Suspect]
     Route: 048
  4. NEXIUM [Suspect]
     Route: 048
  5. JANUVIA [Concomitant]
  6. METFORMIN [Concomitant]
     Dosage: 2000 MG
  7. METOPROLOL [Concomitant]
  8. DIOVAN [Concomitant]
  9. ASPIRIN [Concomitant]
  10. EFFEXOR [Concomitant]
  11. BEANO [Concomitant]
  12. GAS-X [Concomitant]

REACTIONS (4)
  - DYSPHONIA [None]
  - ERUCTATION [None]
  - FLATULENCE [None]
  - MUSCLE SPASMS [None]
